FAERS Safety Report 9023857 (Version 3)
Quarter: 2013Q3

REPORT INFORMATION
  Report Type: Report from Study
  Country: US (occurrence: US)
  Receive Date: 20130121
  Receipt Date: 20130718
  Transmission Date: 20140515
  Serious: Yes (Other)
  Sender: FDA-Public Use
  Company Number: US-ELI_LILLY_AND_COMPANY-US201201009376

PATIENT
  Age: 71 Year
  Sex: Female

DRUGS (13)
  1. TERIPARATIDE [Suspect]
     Indication: OSTEOPOROSIS
     Dosage: 20 UG, QD
     Dates: start: 20120106
  2. TERIPARATIDE [Suspect]
     Dosage: 20 UG, QD
  3. TERIPARATIDE [Suspect]
     Dosage: 20 UG, QD
  4. TERIPARATIDE [Suspect]
     Dosage: 20 UG, QD
  5. TERIPARATIDE [Suspect]
     Dosage: 20 UG, QD
  6. TERIPARATIDE [Suspect]
     Dosage: 20 UG, QD
  7. TERIPARATIDE [Suspect]
     Dosage: 20 UG, QD
  8. TERIPARATIDE [Suspect]
     Dosage: 20 UG, QD
  9. PREDNISONE [Concomitant]
     Indication: PAIN
     Dosage: UNK
  10. CELEBREX [Concomitant]
     Indication: PAIN
     Dosage: UNK
  11. METHOTREXATE [Concomitant]
     Dosage: UNK
  12. ASPIRIN [Concomitant]
     Dosage: UNK
  13. PLAVIX [Concomitant]
     Dosage: UNK

REACTIONS (23)
  - Anaemia [Recovered/Resolved]
  - Gastrointestinal haemorrhage [Recovered/Resolved]
  - Epigastric discomfort [Unknown]
  - Bronchitis [Recovered/Resolved]
  - Pulmonary congestion [Unknown]
  - Malaise [Unknown]
  - Dysphonia [Unknown]
  - Injection site scab [Unknown]
  - Head discomfort [Unknown]
  - Hypokinesia [Recovering/Resolving]
  - Gait disturbance [Recovered/Resolved]
  - Feeling abnormal [Unknown]
  - Malaise [Unknown]
  - General physical health deterioration [Unknown]
  - Tremor [Not Recovered/Not Resolved]
  - Peripheral coldness [Recovering/Resolving]
  - Eating disorder [Unknown]
  - Vertigo [Unknown]
  - Asthenia [Unknown]
  - Dizziness [Recovering/Resolving]
  - Middle insomnia [Unknown]
  - Muscle spasms [Unknown]
  - Oesophageal infection [Recovered/Resolved]
